FAERS Safety Report 7550097-5 (Version None)
Quarter: 2011Q2

REPORT INFORMATION
  Report Type: 
  Country: None (occurrence: None)
  Receive Date: 20110615
  Receipt Date: 20110606
  Transmission Date: 20111010
  Serious: Yes (Hospitalization)
  Sender: FDA-Public Use
  Company Number: FR-ASTRAZENECA-2011SE34985

PATIENT
  Age: 78 Year
  Sex: Male

DRUGS (12)
  1. LASIX [Concomitant]
  2. NEXIUM [Concomitant]
     Route: 065
  3. RAMIPRIL [Concomitant]
  4. ATORVASTATIN [Concomitant]
  5. DIGOXIN [Concomitant]
  6. PROZAC [Concomitant]
  7. TENORMIN [Suspect]
     Indication: HYPERTENSION
     Route: 048
  8. PREVISCAN [Concomitant]
  9. MIANSERINE [Concomitant]
  10. GLUCOR [Concomitant]
  11. POTASSIUM CHLORIDE [Concomitant]
  12. DAFALGAN CODEINE [Concomitant]

REACTIONS (1)
  - ATRIOVENTRICULAR BLOCK COMPLETE [None]
